FAERS Safety Report 5042075-5 (Version None)
Quarter: 2006Q2

REPORT INFORMATION
  Report Type: 
  Country: None (occurrence: None)
  Receive Date: 20060627
  Receipt Date: 20060615
  Transmission Date: 20061013
  Serious: Yes (Other)
  Sender: FDA-Public Use
  Company Number: 2006077157

PATIENT
  Sex: Female
  Weight: 140 kg

DRUGS (7)
  1. NEURONTIN [Suspect]
     Indication: LYME DISEASE
  2. LYRICA [Suspect]
     Indication: POLYNEUROPATHY
     Dosage: 75 MG (25 MG, 3 IN 1 D)
     Dates: start: 20060101
  3. TOPROL-XL [Concomitant]
  4. SYNTHROID [Concomitant]
  5. ALTACE [Concomitant]
  6. KLONOPIN [Concomitant]
  7. ZONEGRAN [Concomitant]

REACTIONS (20)
  - ANAPHYLACTIC REACTION [None]
  - ANXIETY [None]
  - CHEST PAIN [None]
  - CONDITION AGGRAVATED [None]
  - DRUG INEFFECTIVE [None]
  - DYSPNOEA [None]
  - ELECTROLYTE IMBALANCE [None]
  - FLUSHING [None]
  - HYPERSENSITIVITY [None]
  - NAUSEA [None]
  - NIGHT SWEATS [None]
  - PAIN [None]
  - PANIC REACTION [None]
  - RASH [None]
  - RESTLESSNESS [None]
  - TENDERNESS [None]
  - THERAPY REGIMEN CHANGED [None]
  - UNEVALUABLE EVENT [None]
  - VOMITING [None]
  - WRONG TECHNIQUE IN DRUG USAGE PROCESS [None]
